FAERS Safety Report 9807895 (Version 1)
Quarter: 2014Q1

REPORT INFORMATION
  Report Type: Spontaneous
  Country: US (occurrence: US)
  Receive Date: 20140110
  Receipt Date: 20140110
  Transmission Date: 20141002
  Serious: No
  Sender: FDA-Public Use
  Company Number: US-009507513-1401USA003246

PATIENT
  Sex: Male

DRUGS (1)
  1. AFRIN EXTRA MOISTURIZING NASAL SPRAY [Suspect]
     Indication: SINUSITIS
     Dosage: UNK, UNKNOWN
     Route: 045
     Dates: start: 1993

REACTIONS (3)
  - Incorrect drug administration duration [Unknown]
  - Drug effect decreased [Unknown]
  - Off label use [Unknown]
